FAERS Safety Report 13927339 (Version 2)
Quarter: 2017Q4

REPORT INFORMATION
  Report Type: Spontaneous
  Country: US (occurrence: US)
  Receive Date: 20170831
  Receipt Date: 20171027
  Transmission Date: 20180320
  Serious: Yes (Hospitalization)
  Sender: FDA-Public Use
  Company Number: US-BIO PRODUCTS LABORATORY LTD-2025422

PATIENT
  Age: 60 Year
  Sex: Female

DRUGS (1)
  1. GAMMAPLEX [Suspect]
     Active Substance: HUMAN IMMUNOGLOBULIN G
     Dates: start: 20170801

REACTIONS (13)
  - Fatigue [Unknown]
  - Malaise [Unknown]
  - Flushing [Recovered/Resolved]
  - Rash [Recovered/Resolved]
  - Blood pressure diastolic decreased [Recovered/Resolved]
  - Headache [Recovered/Resolved]
  - Dyspnoea [Unknown]
  - Blood pressure increased [Unknown]
  - Polymyositis [Unknown]
  - Chest discomfort [Unknown]
  - Investigation abnormal [Unknown]
  - Pyrexia [Unknown]
  - Nausea [Unknown]

NARRATIVE: CASE EVENT DATE: 20170801
